FAERS Safety Report 4963152-0 (Version None)
Quarter: 2006Q2

REPORT INFORMATION
  Report Type: 
  Country: None (occurrence: None)
  Receive Date: 20060405
  Receipt Date: 20041221
  Transmission Date: 20061013
  Serious: Yes (Hospitalization, Disabling)
  Sender: FDA-Public Use
  Company Number: US-MERCK-0412USA02682

PATIENT
  Age: 52 Year
  Sex: Male
  Weight: 85 kg

DRUGS (13)
  1. VIOXX [Suspect]
     Indication: OSTEOARTHRITIS
     Route: 048
     Dates: start: 20030729, end: 20040802
  2. VIOXX [Suspect]
     Indication: BURSITIS
     Route: 048
     Dates: start: 20030729, end: 20040802
  3. ALEVE [Concomitant]
     Route: 065
  4. ADVIL [Concomitant]
     Route: 065
  5. ZANTAC [Concomitant]
     Route: 065
  6. TUMS [Concomitant]
     Route: 065
  7. VIAGRA [Concomitant]
     Route: 065
  8. METOPROLOL [Concomitant]
     Route: 065
  9. ASPIRIN [Concomitant]
     Route: 065
  10. ASPIRIN [Concomitant]
     Route: 065
  11. ZOCOR [Concomitant]
     Route: 065
  12. PLAVIX [Concomitant]
     Route: 065
  13. LOPRESSOR [Concomitant]
     Route: 065

REACTIONS (6)
  - ACUTE MYOCARDIAL INFARCTION [None]
  - ANGINA UNSTABLE [None]
  - CHEST PAIN [None]
  - CORONARY ARTERY DISEASE [None]
  - HYPOKINESIA [None]
  - MITRAL VALVE INCOMPETENCE [None]
